FAERS Safety Report 5517935-9 (Version None)
Quarter: 2007Q4

REPORT INFORMATION
  Report Type: 
  Country: None (occurrence: None)
  Receive Date: 20071115
  Receipt Date: 20071107
  Transmission Date: 20080405
  Serious: Yes (Hospitalization, Other)
  Sender: FDA-Public Use
  Company Number: PHEH2004US10493

PATIENT

DRUGS (9)
  1. AMEN [Suspect]
     Indication: HORMONE REPLACEMENT THERAPY
     Dosage: 10 MG, UNK
     Dates: start: 19921001, end: 19960801
  2. PREMARIN [Suspect]
     Indication: HORMONE REPLACEMENT THERAPY
     Dosage: 1.25MG/2.5MG
     Route: 048
     Dates: start: 19920101, end: 19960801
  3. ESTRACE [Suspect]
     Indication: HORMONE REPLACEMENT THERAPY
     Dosage: 2 MG, QD
     Route: 048
     Dates: start: 19941001, end: 19941101
  4. PREMPRO [Suspect]
     Indication: HORMONE REPLACEMENT THERAPY
     Dosage: 2.5MG/0.625MG
     Route: 048
     Dates: start: 19961101, end: 20010101
  5. MPA [Suspect]
     Indication: HORMONE REPLACEMENT THERAPY
     Dosage: 10MG/5MG, UNK
     Dates: start: 19940101, end: 19961101
  6. ESTRADERM [Suspect]
     Indication: HORMONE REPLACEMENT THERAPY
     Dosage: 0.1 MG
     Route: 062
     Dates: start: 19960101, end: 19961001
  7. PREMARIN [Suspect]
     Indication: ATROPHIC VULVOVAGINITIS
     Dosage: UNK, UNK
  8. VIOXX [Concomitant]
     Indication: ARTHRITIS
  9. OVCON-35 [Suspect]

REACTIONS (47)
  - ATROPHIC VULVOVAGINITIS [None]
  - BLOOD POTASSIUM DECREASED [None]
  - BREAST CYST [None]
  - BREAST MASS [None]
  - BREAST MICROCALCIFICATION [None]
  - CARPAL TUNNEL DECOMPRESSION [None]
  - CHONDROCALCINOSIS [None]
  - CHRONIC OBSTRUCTIVE PULMONARY DISEASE [None]
  - CYST ASPIRATION [None]
  - CYSTITIS [None]
  - DIARRHOEA [None]
  - DIZZINESS [None]
  - DYSPHAGIA [None]
  - DYSPNOEA [None]
  - ECHOCARDIOGRAM ABNORMAL [None]
  - EMPHYSEMA [None]
  - ESSENTIAL TREMOR [None]
  - FALL [None]
  - FLANK PAIN [None]
  - FOREIGN BODY IN EYE [None]
  - GASTRIC MUCOSAL HYPERTROPHY [None]
  - HAEMATOCHEZIA [None]
  - HYPERMETROPIA [None]
  - INTERSTITIAL LUNG DISEASE [None]
  - IRRITABLE BOWEL SYNDROME [None]
  - JOINT ARTHROPLASTY [None]
  - LEFT VENTRICULAR HYPERTROPHY [None]
  - LUNG HYPERINFLATION [None]
  - LUNG INFILTRATION [None]
  - MENTAL DISORDER [None]
  - MULTIPLE FRACTURES [None]
  - OSTEOPENIA [None]
  - PAIN IN EXTREMITY [None]
  - PNEUMONIA [None]
  - PRESBYOPIA [None]
  - PROTEINURIA [None]
  - PSYCHIATRIC SYMPTOM [None]
  - PULMONARY EMBOLISM [None]
  - PULMONARY FUNCTION TEST ABNORMAL [None]
  - RHONCHI [None]
  - SACROILIITIS [None]
  - SINUSITIS [None]
  - THERAPEUTIC PROCEDURE [None]
  - THROMBOSIS [None]
  - URINARY TRACT DISORDER [None]
  - VAGINAL CYST EXCISION [None]
  - VERTIGO POSITIONAL [None]
